FAERS Safety Report 8328544 (Version 2)
Quarter: 2014Q4

REPORT INFORMATION
  Report Type: Report from Study
  Country: IL (occurrence: IL)
  Receive Date: 20120110
  Receipt Date: 20141106
  Transmission Date: 20150529
  Serious: Yes (Death, Other)
  Sender: FDA-Public Use
  Company Number: IL-ASTELLAS-2012US000135

PATIENT
  Age: 82 Year
  Sex: Male
  Weight: 65 kg

DRUGS (3)
  1. HEPARIN [Concomitant]
     Active Substance: HEPARIN SODIUM
     Indication: PRODUCT USED FOR UNKNOWN INDICATION
     Route: 065
     Dates: start: 20111005, end: 201112
  2. ERLOTINIB [Suspect]
     Active Substance: ERLOTINIB
     Indication: LUNG NEOPLASM MALIGNANT
     Route: 048
     Dates: start: 20111103, end: 20111219
  3. IBUPROFEN. [Concomitant]
     Active Substance: IBUPROFEN
     Indication: PRODUCT USED FOR UNKNOWN INDICATION
     Route: 065
     Dates: start: 20111031, end: 201112

REACTIONS (2)
  - Acute kidney injury [Fatal]
  - Diarrhoea [Fatal]

NARRATIVE: CASE EVENT DATE: 20111215
